FAERS Safety Report 7759825-7 (Version None)
Quarter: 2011Q3

REPORT INFORMATION
  Report Type: 
  Country: None (occurrence: None)
  Receive Date: 20110919
  Receipt Date: 20110913
  Transmission Date: 20111222
  Serious: Yes (Other)
  Sender: FDA-Public Use
  Company Number: US-AMGEN-USASP2011047052

PATIENT
  Age: 75 Year
  Sex: Female

DRUGS (1)
  1. ENBREL [Suspect]
     Indication: RHEUMATOID ARTHRITIS
     Dosage: 50 MG, QWK
     Dates: start: 20110606, end: 20110905

REACTIONS (6)
  - NIGHT SWEATS [None]
  - HAEMOPTYSIS [None]
  - URINARY TRACT INFECTION [None]
  - EPISTAXIS [None]
  - POSTOPERATIVE RESPIRATORY DISTRESS [None]
  - NEPHROLITHIASIS [None]
